FAERS Safety Report 8983903 (Version 1)
Quarter: 2012Q4

REPORT INFORMATION
  Report Type: Spontaneous
  Country: US (occurrence: None)
  Receive Date: 20121218
  Receipt Date: 20121218
  Transmission Date: 20130627
  Serious: Yes (Disabling)
  Sender: FDA-Public Use
  Company Number: None

PATIENT
  Age: 46 Year
  Sex: Male
  Weight: 88 kg

DRUGS (1)
  1. CELEXA [Suspect]
     Dates: start: 20070915, end: 20080430

REACTIONS (3)
  - Pain in jaw [None]
  - Eye pain [None]
  - Trigeminal neuralgia [None]
